FAERS Safety Report 9569007 (Version 2)
Quarter: 2014Q1

REPORT INFORMATION
  Report Type: Spontaneous
  Country: US (occurrence: US)
  Receive Date: 20130930
  Receipt Date: 20140225
  Transmission Date: 20141002
  Serious: No
  Sender: FDA-Public Use
  Company Number: US-AMGEN-USASP2013059715

PATIENT
  Age: 51 Year
  Sex: Female
  Weight: 70.3 kg

DRUGS (6)
  1. ENBREL [Suspect]
     Indication: ANKYLOSING SPONDYLITIS
     Dosage: 50 MG, 2 TIMES/WK
     Route: 058
     Dates: start: 20110401, end: 201305
  2. DILAUDID [Concomitant]
     Dosage: 2 MG, UNK
  3. LIDOCAINE [Concomitant]
     Dosage: 5 %, UNK
  4. PROZAC [Concomitant]
     Dosage: 20 MG, UNK
  5. MULTIVITAMINS, PLAIN [Concomitant]
     Dosage: UNK
  6. ESTROPLUS [Concomitant]
     Dosage: UNK

REACTIONS (7)
  - Pruritus [Not Recovered/Not Resolved]
  - Rash [Unknown]
  - Pain in extremity [Unknown]
  - Scar [Not Recovered/Not Resolved]
  - Skin reaction [Not Recovered/Not Resolved]
  - Skin ulcer [Not Recovered/Not Resolved]
  - Drug eruption [Not Recovered/Not Resolved]
